FAERS Safety Report 17654892 (Version 1)
Quarter: 2020Q2

REPORT INFORMATION
  Report Type: Spontaneous
  Country: DE (occurrence: DE)
  Receive Date: 20200410
  Receipt Date: 20200410
  Transmission Date: 20200713
  Serious: Yes (Life-Threatening, Hospitalization)
  Sender: FDA-Public Use
  Company Number: DE-TEVA-2020-DE-1220929

PATIENT
  Age: 6 Year
  Sex: Female
  Weight: 18 kg

DRUGS (4)
  1. COTRIM K [Suspect]
     Active Substance: SULFAMETHOXAZOLE\TRIMETHOPRIM
     Indication: NEUTROPENIA
     Dosage: 50MG-0-50MG 3X / WEEK
     Route: 048
  2. G-CSF [Suspect]
     Active Substance: GRANULOCYTE COLONY-STIMULATING FACTOR NOS
     Indication: NEUTROPENIA
     Dosage: 480MCG-0-0 DAILY
     Route: 058
     Dates: start: 201210
  3. VITAMIN D [Concomitant]
     Active Substance: VITAMIN D NOS
     Indication: PROPHYLAXIS
     Dosage: 5000 IU (INTERNATIONAL UNIT) DAILY;
     Route: 048
  4. SEMPERA [Suspect]
     Active Substance: ITRACONAZOLE
     Indication: NEUTROPENIA
     Dosage: 50MG-0-50MG
     Route: 048

REACTIONS (3)
  - Diet refusal [Recovered/Resolved]
  - General physical health deterioration [Recovered/Resolved]
  - Pyrexia [Recovered/Resolved]

NARRATIVE: CASE EVENT DATE: 20190207
